FAERS Safety Report 17686938 (Version 5)
Quarter: 2021Q3

REPORT INFORMATION
  Report Type: Spontaneous
  Country: US (occurrence: US)
  Receive Date: 20200421
  Receipt Date: 20210831
  Transmission Date: 20211014
  Serious: Yes (Other)
  Sender: FDA-Public Use
  Company Number: US-ASTRAZENECA-2020SE51715

PATIENT
  Age: 886 Month
  Sex: Male

DRUGS (45)
  1. NEXIUM [Suspect]
     Active Substance: ESOMEPRAZOLE MAGNESIUM
     Indication: ERUCTATION
     Route: 048
     Dates: start: 2005, end: 2016
  2. NEXIUM [Suspect]
     Active Substance: ESOMEPRAZOLE MAGNESIUM
     Indication: GASTROOESOPHAGEAL REFLUX DISEASE
     Route: 048
     Dates: start: 2005, end: 2015
  3. ASPIRIN. [Concomitant]
     Active Substance: ASPIRIN
     Indication: PROPHYLAXIS
     Dates: start: 2005, end: 2018
  4. TRAZODONE [Concomitant]
     Active Substance: TRAZODONE HYDROCHLORIDE
     Indication: SLEEP DISORDER
     Dates: start: 2020
  5. CELEXA [Concomitant]
     Active Substance: CITALOPRAM HYDROBROMIDE
     Indication: ANXIETY
     Dates: start: 2016, end: 2019
  6. GLUCOTROL [Concomitant]
     Active Substance: GLIPIZIDE
  7. LORATADINE. [Concomitant]
     Active Substance: LORATADINE
  8. NEXIUM [Suspect]
     Active Substance: ESOMEPRAZOLE MAGNESIUM
     Indication: GASTROOESOPHAGEAL REFLUX DISEASE
     Route: 048
     Dates: start: 2005, end: 2016
  9. VITAMIN D [Concomitant]
     Active Substance: VITAMIN D NOS
  10. ROSIGLITAZONE [Concomitant]
     Active Substance: ROSIGLITAZONE
  11. FENTANYL. [Concomitant]
     Active Substance: FENTANYL
  12. FLUTICASONE. [Concomitant]
     Active Substance: FLUTICASONE
  13. NEXIUM [Suspect]
     Active Substance: ESOMEPRAZOLE MAGNESIUM
     Indication: GASTROOESOPHAGEAL REFLUX DISEASE
     Route: 048
     Dates: start: 200401, end: 201412
  14. NEXIUM [Suspect]
     Active Substance: ESOMEPRAZOLE MAGNESIUM
     Indication: ERUCTATION
     Route: 048
     Dates: start: 200401, end: 201412
  15. ALPRAZOLAM. [Concomitant]
     Active Substance: ALPRAZOLAM
  16. LISINOPRIL. [Concomitant]
     Active Substance: LISINOPRIL
  17. ENOXAPARIN [Concomitant]
     Active Substance: ENOXAPARIN
  18. MAGNESIUM CITRATE. [Concomitant]
     Active Substance: MAGNESIUM CITRATE
  19. ZANTAC [Concomitant]
     Active Substance: RANITIDINE HYDROCHLORIDE
     Indication: ERUCTATION
     Dates: start: 2005, end: 2016
  20. PEPTO?BISMOL [Concomitant]
     Active Substance: BISMUTH SUBSALICYLATE
     Indication: ERUCTATION
     Dates: start: 2005, end: 2016
  21. SIMVASTATIN. [Concomitant]
     Active Substance: SIMVASTATIN
  22. DOCUSATE [Concomitant]
     Active Substance: DOCUSATE
  23. ENOXAPARIN [Concomitant]
     Active Substance: ENOXAPARIN
  24. INDOMETHACIN. [Concomitant]
     Active Substance: INDOMETHACIN
  25. METHACARBAMOL [Concomitant]
     Active Substance: METHOCARBAMOL
  26. DIAZEPAM. [Concomitant]
     Active Substance: DIAZEPAM
  27. GUAIFENESIN. [Concomitant]
     Active Substance: GUAIFENESIN
  28. GATIFLOXACIN. [Concomitant]
     Active Substance: GATIFLOXACIN
  29. NEXIUM [Suspect]
     Active Substance: ESOMEPRAZOLE MAGNESIUM
     Indication: ERUCTATION
     Route: 048
     Dates: start: 2005, end: 2015
  30. DONEPEZIL. [Concomitant]
     Active Substance: DONEPEZIL
     Indication: DEMENTIA
     Dates: start: 2020
  31. MORPHINE [Concomitant]
     Active Substance: MORPHINE
  32. OXYCODONE?ACETAMINOPHEN [Concomitant]
     Active Substance: ACETAMINOPHEN\OXYCODONE HYDROCHLORIDE
  33. COSAMIN [Concomitant]
  34. NIACIN. [Concomitant]
     Active Substance: NIACIN
  35. MEPERIDINE [Concomitant]
     Active Substance: MEPERIDINE
  36. PROMETHAZINE [Concomitant]
     Active Substance: PROMETHAZINE HYDROCHLORIDE
  37. GLIPIZIDE. [Concomitant]
     Active Substance: GLIPIZIDE
  38. MEMANTINE. [Concomitant]
     Active Substance: MEMANTINE
     Indication: DEMENTIA
     Dates: start: 2020
  39. ESCITALOPRAM [Concomitant]
     Active Substance: ESCITALOPRAM OXALATE
     Indication: ANXIETY
     Dates: start: 2020
  40. COLD MEDICINE [Concomitant]
     Active Substance: UNSPECIFIED INGREDIENT
     Indication: NASOPHARYNGITIS
     Dates: start: 2000, end: 2018
  41. GLIPIZIDE. [Concomitant]
     Active Substance: GLIPIZIDE
  42. TERAZOSIN [Concomitant]
     Active Substance: TERAZOSIN HYDROCHLORIDE
  43. MULTIVITAMINS [Concomitant]
     Active Substance: VITAMINS
  44. RANITIDINE. [Concomitant]
     Active Substance: RANITIDINE
  45. ONDANSETRON [Concomitant]
     Active Substance: ONDANSETRON

REACTIONS (5)
  - Renal failure [Unknown]
  - Hyperparathyroidism secondary [Unknown]
  - Acute kidney injury [Unknown]
  - Renal cancer stage II [Not Recovered/Not Resolved]
  - Chronic kidney disease [Not Recovered/Not Resolved]

NARRATIVE: CASE EVENT DATE: 201412
